FAERS Safety Report 7271787-8 (Version None)
Quarter: 2011Q1

REPORT INFORMATION
  Report Type: 
  Country: None (occurrence: None)
  Receive Date: 20110203
  Receipt Date: 20110121
  Transmission Date: 20110831
  Serious: Yes (Other)
  Sender: FDA-Public Use
  Company Number: US-VALEANT-2011VX000334

PATIENT
  Age: 88 Year
  Sex: Male
  Weight: 87 kg

DRUGS (5)
  1. XALATAN [Suspect]
     Indication: GLAUCOMA
     Route: 047
  2. TIMOPTIC [Suspect]
     Route: 047
  3. TIMOPTIC [Suspect]
     Indication: GLAUCOMA
     Route: 047
  4. OMEPRAZOLE [Concomitant]
     Indication: GASTROOESOPHAGEAL REFLUX DISEASE
     Route: 048
  5. GABAPENTIN [Concomitant]
     Indication: PAIN
     Route: 048

REACTIONS (3)
  - GASTROOESOPHAGEAL REFLUX DISEASE [None]
  - PAIN [None]
  - VISUAL ACUITY REDUCED [None]
